FAERS Safety Report 7673466-1 (Version None)
Quarter: 2011Q3

REPORT INFORMATION
  Report Type: 
  Country: None (occurrence: None)
  Receive Date: 20110810
  Receipt Date: 20110805
  Transmission Date: 20111222
  Serious: No
  Sender: FDA-Public Use
  Company Number: US-PFIZER INC-2011181182

PATIENT
  Sex: Female

DRUGS (3)
  1. DILTIAZEM HYDROCHLORIDE [Interacting]
     Indication: HEART RATE INCREASED
  2. DILTIAZEM HYDROCHLORIDE [Interacting]
     Indication: ATRIAL FIBRILLATION
     Dosage: 180 MG, UNK
     Dates: start: 20110101
  3. TRIAZOLAM [Suspect]

REACTIONS (1)
  - DRUG INTERACTION [None]
